FAERS Safety Report 11258994 (Version 1)
Quarter: 2015Q3

REPORT INFORMATION
  Report Type: Spontaneous
  Country: BR (occurrence: BR)
  Receive Date: 20150710
  Receipt Date: 20150710
  Transmission Date: 20151125
  Serious: Yes (Death, Other)
  Sender: FDA-Public Use
  Company Number: BR-PFIZER INC-2015225464

PATIENT
  Age: 89 Year
  Sex: Female

DRUGS (3)
  1. PURAN [Concomitant]
     Active Substance: LEVOTHYROXINE SODIUM
  2. XALATAN [Suspect]
     Active Substance: LATANOPROST
     Dosage: 3 ?G (1 DROP IN EACH EYE), 1X/DAY
     Route: 047
  3. ANCORON [Concomitant]
     Active Substance: AMIODARONE HYDROCHLORIDE

REACTIONS (6)
  - Eye disorder [Unknown]
  - Blindness [Unknown]
  - Multi-organ failure [Fatal]
  - Glaucoma [Unknown]
  - Intraocular pressure test abnormal [Unknown]
  - Cataract [Unknown]
